FAERS Safety Report 8912058 (Version 1)
Quarter: 2012Q4

REPORT INFORMATION
  Report Type: 
  Country: US (occurrence: US)
  Receive Date: 20121115
  Receipt Date: 20121115
  Transmission Date: 20130627
  Serious: No
  Sender: FDA-Public Use
  Company Number: US-009507513-1211USA003786

PATIENT
  Age: 24 Year
  Sex: Female
  Weight: 63.49 kg

DRUGS (2)
  1. NUVARING [Suspect]
     Indication: CONTRACEPTION
     Dosage: UNK
     Route: 067
     Dates: start: 2005
  2. NUVARING [Suspect]
     Dosage: UNK
     Route: 067
     Dates: start: 20121023

REACTIONS (4)
  - Metrorrhagia [Unknown]
  - Feeling abnormal [Unknown]
  - Device expulsion [Unknown]
  - Incorrect drug administration duration [Unknown]
